FAERS Safety Report 22261533 (Version 1)
Quarter: 2023Q2

REPORT INFORMATION
  Report Type: Spontaneous
  Country: US (occurrence: US)
  Receive Date: 20230427
  Receipt Date: 20230427
  Transmission Date: 20230722
  Serious: Yes (Hospitalization, Other)
  Sender: FDA-Public Use
  Company Number: US-BRISTOL-MYERS SQUIBB COMPANY-2023-056692

PATIENT
  Age: 68 Year
  Sex: Male

DRUGS (1)
  1. REVLIMID [Suspect]
     Active Substance: LENALIDOMIDE
     Indication: Plasma cell myeloma
     Dosage: 10 MG DAILY FOR 21 DAYS ON ,7 DAYS OFF.
     Route: 048
     Dates: start: 2019

REACTIONS (6)
  - Dementia [Unknown]
  - Deep vein thrombosis [Unknown]
  - Fracture [Unknown]
  - Fall [Unknown]
  - Seizure [Unknown]
  - Localised infection [Unknown]

NARRATIVE: CASE EVENT DATE: 20230101
